FAERS Safety Report 12617947 (Version 1)
Quarter: 2016Q3

REPORT INFORMATION
  Report Type: Report from Study
  Country: US (occurrence: US)
  Receive Date: 20160803
  Receipt Date: 20160803
  Transmission Date: 20161109
  Serious: Yes (Other)
  Sender: FDA-Public Use
  Company Number: US-ROCHE-1806448

PATIENT
  Age: 55 Year
  Sex: Male

DRUGS (2)
  1. VISMODEGIB [Suspect]
     Active Substance: VISMODEGIB
     Indication: GLIOBLASTOMA MULTIFORME
     Route: 048
     Dates: start: 20101102
  2. VISMODEGIB [Suspect]
     Active Substance: VISMODEGIB
     Dosage: LAST DOSE PREIOR TO SAE ON 23/DEC/2010
     Route: 048
     Dates: start: 20101130

REACTIONS (1)
  - Hypophosphataemia [Unknown]
